FAERS Safety Report 18692050 (Version 1)
Quarter: 2021Q1

REPORT INFORMATION
  Report Type: Spontaneous
  Country: BD (occurrence: BD)
  Receive Date: 20210102
  Receipt Date: 20210102
  Transmission Date: 20210419
  Serious: Yes (Death, Life-Threatening, Other)
  Sender: FDA-Public Use
  Company Number: BD-ACCORD-213063

PATIENT
  Age: 7 Year
  Sex: Female

DRUGS (6)
  1. VINCRISTINE [Suspect]
     Active Substance: VINCRISTINE
     Indication: RHABDOMYOSARCOMA
     Dosage: ADJUVANT CHEMOTHERAPY
     Dates: start: 202001
  2. IRINOTECAN [Suspect]
     Active Substance: IRINOTECAN
     Indication: RHABDOMYOSARCOMA
     Dosage: ADJUVANT CHEMOTHERAPY
     Dates: start: 202001
  3. DEXAMETHASONE. [Suspect]
     Active Substance: DEXAMETHASONE
     Indication: RHABDOMYOSARCOMA
     Dosage: NEO ADJUVANT CHEMOTHERAPY
  4. DEXAMETHASONE. [Suspect]
     Active Substance: DEXAMETHASONE
     Indication: RHABDOMYOSARCOMA
     Dosage: ADJUVANT CHEMOTHERAPY
     Dates: start: 202001
  5. VINCRISTINE [Suspect]
     Active Substance: VINCRISTINE
     Indication: RHABDOMYOSARCOMA
     Dosage: ADJUVANT CHEMOTHERAPY
     Route: 042
  6. IRINOTECAN [Suspect]
     Active Substance: IRINOTECAN
     Indication: RHABDOMYOSARCOMA
     Dosage: DAY 1?5; NEO ADJUVANT CHEMOTHERAPY
     Route: 042
     Dates: start: 202001

REACTIONS (1)
  - Generalised oedema [Fatal]

NARRATIVE: CASE EVENT DATE: 2020
